FAERS Safety Report 6331000-2 (Version None)
Quarter: 2009Q3

REPORT INFORMATION
  Report Type: 
  Country: None (occurrence: None)
  Receive Date: 20090827
  Receipt Date: 20090818
  Transmission Date: 20100115
  Serious: Yes (Death)
  Sender: FDA-Public Use
  Company Number: A0761181A

PATIENT
  Age: 78 Year
  Sex: Female
  Weight: 59.1 kg

DRUGS (12)
  1. AVANDIA [Suspect]
     Route: 048
     Dates: start: 20060101, end: 20060901
  2. MELOXICAM [Concomitant]
  3. VITAMINS [Concomitant]
  4. TRAZODONE HCL [Concomitant]
  5. LEVOTHYROXINE [Concomitant]
  6. INSULIN [Concomitant]
  7. NORVASC [Concomitant]
  8. TRIAMTERENE [Concomitant]
  9. TOPROL-XL [Concomitant]
  10. DOXAZOSIN [Concomitant]
  11. PREMARIN [Concomitant]
  12. PREDNISONE TAB [Concomitant]

REACTIONS (2)
  - CARDIO-RESPIRATORY ARREST [None]
  - MYOCARDIAL INFARCTION [None]
